FAERS Safety Report 8165347 (Version 6)
Quarter: 2016Q2

REPORT INFORMATION
  Report Type: Spontaneous
  Country: AU (occurrence: AU)
  Receive Date: 20111003
  Receipt Date: 20160609
  Transmission Date: 20160815
  Serious: Yes (Hospitalization, Other)
  Sender: FDA-Public Use
  Company Number: MY-JNJFOC-20110908321

PATIENT
  Age: 14 Year
  Sex: Male

DRUGS (15)
  1. RISPERDAL CONSTA [Suspect]
     Active Substance: RISPERIDONE
     Indication: BRAIN INJURY
     Route: 030
     Dates: start: 20080121, end: 20080121
  2. SOLIAN [Suspect]
     Active Substance: AMISULPRIDE
     Indication: PRODUCT USED FOR UNKNOWN INDICATION
  3. RISPERDAL CONSTA [Suspect]
     Active Substance: RISPERIDONE
     Indication: SCHIZOPHRENIA
     Route: 030
     Dates: start: 20071104
  4. RISPERDAL [Suspect]
     Active Substance: RISPERIDONE
     Indication: BRAIN INJURY
     Dosage: 3 PILLS DAILY
     Route: 048
     Dates: start: 20071104, end: 20080121
  5. RISPERDAL CONSTA [Suspect]
     Active Substance: RISPERIDONE
     Indication: SCHIZOPHRENIA
     Route: 030
     Dates: start: 20071227, end: 20080121
  6. UNSPECIFIED PSYCHIATRIC MEDICATION [Suspect]
     Active Substance: UNSPECIFIED INGREDIENT
     Indication: PRODUCT USED FOR UNKNOWN INDICATION
     Route: 048
     Dates: start: 2006
  7. RISPERDAL [Suspect]
     Active Substance: RISPERIDONE
     Indication: PRODUCT USED FOR UNKNOWN INDICATION
     Route: 065
  8. OLANZAPINE. [Suspect]
     Active Substance: OLANZAPINE
     Indication: PRODUCT USED FOR UNKNOWN INDICATION
     Route: 065
     Dates: start: 20071104, end: 20080121
  9. RISPERDAL [Suspect]
     Active Substance: RISPERIDONE
     Indication: SCHIZOPHRENIA
     Dosage: 3 PILLS DAILY
     Route: 048
     Dates: start: 20071104, end: 20080121
  10. SEROQUEL [Suspect]
     Active Substance: QUETIAPINE FUMARATE
     Indication: PRODUCT USED FOR UNKNOWN INDICATION
     Route: 065
  11. RISPERDAL CONSTA [Suspect]
     Active Substance: RISPERIDONE
     Indication: BRAIN INJURY
     Route: 030
     Dates: start: 20071227, end: 20080121
  12. RISPERDAL CONSTA [Suspect]
     Active Substance: RISPERIDONE
     Indication: BRAIN INJURY
     Route: 030
     Dates: start: 20071104
  13. SEDATIVE [Suspect]
     Active Substance: UNSPECIFIED INGREDIENT
     Indication: PRODUCT USED FOR UNKNOWN INDICATION
     Route: 065
  14. RISPERDAL CONSTA [Suspect]
     Active Substance: RISPERIDONE
     Indication: SCHIZOPHRENIA
     Route: 030
     Dates: start: 20080121, end: 20080121
  15. UNKNOWN MEDICATION [Suspect]
     Active Substance: UNSPECIFIED INGREDIENT
     Indication: PRODUCT USED FOR UNKNOWN INDICATION
     Route: 065

REACTIONS (36)
  - Brain oedema [Unknown]
  - Agitation [Unknown]
  - Anger [Unknown]
  - Overdose [Recovering/Resolving]
  - Stress [Unknown]
  - Hypersomnia [Not Recovered/Not Resolved]
  - Dry skin [Unknown]
  - Rectal haemorrhage [Unknown]
  - Obesity [Not Recovered/Not Resolved]
  - Depressed mood [Unknown]
  - Feeling abnormal [Unknown]
  - Anxiety [Unknown]
  - Rash [Unknown]
  - Gynaecomastia [Unknown]
  - Arachnoid cyst [Unknown]
  - Amnesia [Unknown]
  - Dry mouth [Unknown]
  - Hypertension [Unknown]
  - Product quality issue [Unknown]
  - Intentional product misuse [Unknown]
  - Unevaluable event [Unknown]
  - Skin striae [Unknown]
  - Vision blurred [Unknown]
  - Drug ineffective [Unknown]
  - Cognitive disorder [Unknown]
  - Scar [Recovered/Resolved]
  - Neuroleptic malignant syndrome [Unknown]
  - Insomnia [Unknown]
  - Aggression [Unknown]
  - Intracranial pressure increased [Unknown]
  - Victim of abuse [Unknown]
  - Drug abuse [Unknown]
  - Swelling [Unknown]
  - Skin disorder [Unknown]
  - Heart rate increased [Unknown]
  - Medication error [Unknown]

NARRATIVE: CASE EVENT DATE: 200712
